FAERS Safety Report 9788804 (Version 2)
Quarter: 2013Q4

REPORT INFORMATION
  Report Type: Spontaneous
  Country: JP (occurrence: JP)
  Receive Date: 20131230
  Receipt Date: 20131230
  Transmission Date: 20140711
  Serious: Yes (Disabling)
  Sender: FDA-Public Use
  Company Number: JP-NOVOPROD-384925

PATIENT
  Age: 86 Year
  Sex: Male

DRUGS (10)
  1. SUREPOST [Suspect]
     Indication: TYPE 2 DIABETES MELLITUS
     Dosage: 0.75 MG, QD
     Route: 048
     Dates: start: 20121031, end: 20130727
  2. CRAVIT [Concomitant]
  3. PLAVIX [Concomitant]
     Indication: CEREBRAL INFARCTION
     Dosage: 75 MG, QD
     Route: 048
  4. MAGMITT [Concomitant]
     Indication: CONSTIPATION
     Dosage: 660 MG, QD
     Route: 048
  5. MUCOSOLVAN [Concomitant]
     Indication: BRONCHITIS CHRONIC
     Dosage: 45 MG, QD
     Route: 048
  6. NIFEDIPINE [Concomitant]
     Indication: HYPERTENSION
     Dosage: 20 MG, QD
     Route: 048
  7. CARDENALIN [Concomitant]
     Indication: HYPERTENSION
     Dosage: 1 MG, QD
     Route: 048
  8. KALIMATE [Concomitant]
     Indication: HYPERKALAEMIA
     Dosage: 10.34 G, QD
     Route: 048
  9. COUGHCODE N [Concomitant]
     Indication: NASOPHARYNGITIS
     Dosage: 6 DF, QD
     Route: 048
  10. CLARITH [Concomitant]
     Indication: NASOPHARYNGITIS
     Dosage: 400 MG, QD
     Route: 048

REACTIONS (1)
  - Hypoglycaemic coma [Not Recovered/Not Resolved]
